FAERS Safety Report 24214860 (Version 1)
Quarter: 2024Q3

REPORT INFORMATION
  Report Type: Spontaneous
  Country: FR (occurrence: FR)
  Receive Date: 20240815
  Receipt Date: 20240815
  Transmission Date: 20241016
  Serious: Yes (Hospitalization)
  Sender: TEVA
  Company Number: None

PATIENT
  Age: 18 Year
  Sex: Female

DRUGS (11)
  1. MIRTAZAPINE [Suspect]
     Active Substance: MIRTAZAPINE
     Indication: Product used for unknown indication
     Dosage: 1 TAB: 15MG
     Route: 048
     Dates: start: 20240721, end: 20240721
  2. CANNABIS SATIVA SUBSP. INDICA TOP [Suspect]
     Active Substance: CANNABIS SATIVA SUBSP. INDICA TOP
     Indication: Product used for unknown indication
     Dosage: CASUAL
     Route: 065
     Dates: start: 2013, end: 2020
  3. CANNABIS SATIVA SUBSP. INDICA TOP [Suspect]
     Active Substance: CANNABIS SATIVA SUBSP. INDICA TOP
     Indication: Product used for unknown indication
     Dosage: 4-6 JOINTS PER DAY
     Route: 065
     Dates: start: 2020
  4. ALCOHOL [Suspect]
     Active Substance: ALCOHOL
     Indication: Product used for unknown indication
     Dosage: 75 CL OF BEER, ALCOHOL (DRINK)
     Route: 048
     Dates: start: 20240721, end: 20240721
  5. ALCOHOL [Suspect]
     Active Substance: ALCOHOL
     Indication: Product used for unknown indication
     Dosage: CURRENTLY 9 US/D, ALCOHOL (DRINK)
     Route: 048
  6. XANAX [Suspect]
     Active Substance: ALPRAZOLAM
     Indication: Product used for unknown indication
     Dosage: 30 TABLETS OR 7.5MG,   SCORED TABLET
     Route: 048
     Dates: start: 20240721, end: 20240721
  7. XANAX [Suspect]
     Active Substance: ALPRAZOLAM
     Indication: Product used for unknown indication
     Dosage: SCORED TABLET
     Route: 048
  8. COCAINE [Suspect]
     Active Substance: COCAINE
     Indication: Product used for unknown indication
     Dosage: CASUAL
     Route: 045
     Dates: start: 2022
  9. KETAMINE [Suspect]
     Active Substance: KETAMINE
     Indication: Product used for unknown indication
     Dosage: CASUAL,  KETAMINE NON MEDICAMENT (WITHOUT OTHER INFO)
     Route: 045
     Dates: start: 202403
  10. KETAMINE [Suspect]
     Active Substance: KETAMINE
     Indication: Product used for unknown indication
     Dosage: DAILY: 10 TRACES/DAY, KETAMINE NON MEDICAMENT (WITHOUT OTHER INFO)
     Route: 045
     Dates: start: 202312, end: 202403
  11. CYAMEMAZINE [Suspect]
     Active Substance: CYAMEMAZINE
     Indication: Product used for unknown indication
     Dosage: 1 SIP , ORAL SOLUTION IN DROPS
     Route: 048
     Dates: start: 20240721, end: 20240721

REACTIONS (4)
  - Mydriasis [Recovered/Resolved]
  - Drug abuse [Not Recovered/Not Resolved]
  - Toxicity to various agents [Recovered/Resolved]
  - Somnolence [Recovered/Resolved]

NARRATIVE: CASE EVENT DATE: 20130101
